FAERS Safety Report 13654985 (Version 1)
Quarter: 2017Q2

REPORT INFORMATION
  Report Type: Report from Study
  Country: US (occurrence: US)
  Receive Date: 20170615
  Receipt Date: 20170615
  Transmission Date: 20170830
  Serious: Yes (Death, Hospitalization)
  Sender: FDA-Public Use
  Company Number: US-TORRENT-00002835

PATIENT
  Age: 44 Year
  Sex: Female

DRUGS (8)
  1. OXYCODONE [Suspect]
     Active Substance: OXYCODONE
  2. LAMOTRIGINE. [Suspect]
     Active Substance: LAMOTRIGINE
  3. HYDROCHLOROTHIAZIDE. [Suspect]
     Active Substance: HYDROCHLOROTHIAZIDE
  4. DIAMORPHINE [Suspect]
     Active Substance: DIAMORPHINE
  5. QUETIAPINE. [Suspect]
     Active Substance: QUETIAPINE
  6. BUPROPION. [Suspect]
     Active Substance: BUPROPION
  7. ALPRAZOLAM. [Suspect]
     Active Substance: ALPRAZOLAM
  8. PAROXETINE. [Suspect]
     Active Substance: PAROXETINE

REACTIONS (2)
  - Completed suicide [Fatal]
  - Toxicity to various agents [Fatal]
